FAERS Safety Report 21340600 (Version 1)
Quarter: 2022Q3

REPORT INFORMATION
  Report Type: Spontaneous
  Country: US (occurrence: US)
  Receive Date: 20220916
  Receipt Date: 20220916
  Transmission Date: 20221027
  Serious: No
  Sender: FDA-Public Use
  Company Number: US-SA-SAC20220914000051

PATIENT
  Age: 56 Year
  Sex: Female
  Weight: 87 kg

DRUGS (28)
  1. AUBAGIO [Suspect]
     Active Substance: TERIFLUNOMIDE
     Indication: Multiple sclerosis
     Dosage: 14 MG, QD
     Route: 048
  2. CETIRIZINE HYDROCHLORIDE [Concomitant]
     Active Substance: CETIRIZINE HYDROCHLORIDE
     Dosage: UNK
  3. EPINEPHRINE [Concomitant]
     Active Substance: EPINEPHRINE
     Dosage: UNK
  4. ACETAMINOPHEN [Concomitant]
     Active Substance: ACETAMINOPHEN
     Dosage: UNK
  5. DIPHENHYDRAMINE [Concomitant]
     Active Substance: DIPHENHYDRAMINE
     Dosage: UNK
  6. LIDOCAINE [Concomitant]
     Active Substance: LIDOCAINE
     Dosage: UNK
  7. CUVITRU [Concomitant]
     Active Substance: HUMAN IMMUNOGLOBULIN G
     Dosage: UNK
  8. ZYRTEC [Concomitant]
     Active Substance: CETIRIZINE HYDROCHLORIDE
     Dosage: UNK
  9. CHLORTHALIDONE [Concomitant]
     Active Substance: CHLORTHALIDONE
     Dosage: UNK
  10. NORCO [Concomitant]
     Active Substance: ACETAMINOPHEN\HYDROCODONE BITARTRATE
     Dosage: UNK
  11. NAPROXEN [Concomitant]
     Active Substance: NAPROXEN
     Dosage: UNK
  12. GABAPENTIN [Concomitant]
     Active Substance: GABAPENTIN
     Dosage: UNK
  13. VITAMIN D3 [Concomitant]
     Active Substance: CHOLECALCIFEROL
     Dosage: UNK
  14. CYANOCOBALAMIN [Concomitant]
     Active Substance: CYANOCOBALAMIN
     Dosage: UNK
  15. PROGESTERONE [Concomitant]
     Active Substance: PROGESTERONE
     Dosage: UNK
  16. ORACEA [DOXYCYCLINE] [Concomitant]
     Dosage: UNK
  17. PRILOSEC [Concomitant]
     Active Substance: OMEPRAZOLE MAGNESIUM
     Dosage: UNK
  18. NASALCROM [Concomitant]
     Active Substance: CROMOLYN SODIUM
     Dosage: UNK
  19. SINGULAIR [Concomitant]
     Active Substance: MONTELUKAST SODIUM
     Dosage: UNK
  20. ATIVAN [Concomitant]
     Active Substance: LORAZEPAM
     Dosage: UNK
  21. XHANCE [Concomitant]
     Active Substance: FLUTICASONE PROPIONATE
     Dosage: UNK
  22. ESTRADIOL [Concomitant]
     Active Substance: ESTRADIOL
     Dosage: UNK, QD
  23. DULOXETINE HYDROCHLORIDE [Concomitant]
     Active Substance: DULOXETINE HYDROCHLORIDE
     Dosage: UNK
  24. BUPROPION [Concomitant]
     Active Substance: BUPROPION
     Dosage: UNK
  25. BIOTIN [Concomitant]
     Active Substance: BIOTIN
     Dosage: UNK
  26. LIPITOR [Concomitant]
     Active Substance: ATORVASTATIN CALCIUM
     Dosage: UNK
  27. ZYRTEC [Concomitant]
     Active Substance: CETIRIZINE HYDROCHLORIDE
     Dosage: UNK
  28. LIDOCAINE [Concomitant]
     Active Substance: LIDOCAINE
     Dosage: UNK

REACTIONS (1)
  - Nasopharyngitis [Unknown]

NARRATIVE: CASE EVENT DATE: 20220901
